FAERS Safety Report 4810524-0 (Version None)
Quarter: 2005Q4

REPORT INFORMATION
  Report Type: 
  Country: None (occurrence: None)
  Receive Date: 20051025
  Receipt Date: 20051025
  Transmission Date: 20060501
  Serious: Yes (Other)
  Sender: FDA-Public Use
  Company Number: None

PATIENT
  Age: 57 Year
  Sex: Male
  Weight: 69.4 kg

DRUGS (14)
  1. OXYBUTYNIN CHLORIDE [Suspect]
  2. FELODIPINE [Concomitant]
  3. EFAVIRENZ [Concomitant]
  4. LAMIVUDINE [Concomitant]
  5. METOPROLOL TARTRATE [Concomitant]
  6. SODIUM FLUORIDE [Concomitant]
  7. OLANZAPINE [Concomitant]
  8. OMEPRAZOLE [Concomitant]
  9. STAVUDINE (D4T) [Concomitant]
  10. HCTZ 25/LISINOPRIL [Concomitant]
  11. LORAZEPAM [Concomitant]
  12. CYANOCOBALAMIN [Concomitant]
  13. OXYBUTYNIN CHLORIDE [Concomitant]
  14. MORPHINE [Concomitant]

REACTIONS (2)
  - CONSTIPATION [None]
  - DRY MOUTH [None]
